FAERS Safety Report 8309775-2 (Version None)
Quarter: 2012Q2

REPORT INFORMATION
  Report Type: 
  Country: None (occurrence: None)
  Receive Date: 20120425
  Receipt Date: 20120420
  Transmission Date: 20120825
  Serious: Yes (Other)
  Sender: FDA-Public Use
  Company Number: PHHY2012AU033988

PATIENT
  Sex: Male

DRUGS (14)
  1. ASENAPINE [Concomitant]
     Dosage: 20 MG, QD (NOCTE)
     Dates: start: 20120130
  2. MULTI-VITAMIN [Concomitant]
     Dosage: 1 DF, QD
  3. COLOXYL WITH SENNA [Concomitant]
     Dosage: 2 DF, BID
  4. CLONAZEPAM [Concomitant]
     Dosage: 1 MG, BID
  5. MIRTAZAPINE [Concomitant]
     Dosage: 60 MG, QD (NOCTE)
  6. ASPIRIN [Concomitant]
     Dosage: 100 MG, QD
  7. AMLODIPINE [Concomitant]
     Dosage: 25 MG, QD
  8. INDAPAMIDE W/PERINDOPRIL [Concomitant]
     Dosage: 1 DF, QD
  9. QUETIAPINE [Concomitant]
     Dosage: 100 MG, QD
  10. ATORVASTATIN [Concomitant]
     Dosage: 80 MG, QD (NOCTE)
  11. ALBUTEROL [Concomitant]
     Dosage: 1 DF, QID
  12. CLOZARIL [Suspect]
     Indication: SCHIZOPHRENIA
     Dosage: 600 MG, QD
     Dates: start: 19950125
  13. METFORMIN HCL [Concomitant]
     Dosage: 1 G, BID
  14. TIOTROPIUM [Concomitant]
     Dosage: UNK UKN, QD (MANE)

REACTIONS (17)
  - SPINAL OSTEOARTHRITIS [None]
  - ELECTROCARDIOGRAM QT PROLONGED [None]
  - COUGH [None]
  - SPLENIC CYST [None]
  - HAEMOPTYSIS [None]
  - GLYCOSYLATED HAEMOGLOBIN INCREASED [None]
  - DIVERTICULUM [None]
  - RENAL CYST [None]
  - ADRENAL MASS [None]
  - CHOLELITHIASIS [None]
  - MESENTERIC LYMPHADENOPATHY [None]
  - PULMONARY FIBROSIS [None]
  - WHITE BLOOD CELL COUNT INCREASED [None]
  - NEUTROPHIL COUNT INCREASED [None]
  - PERICARDIAL EFFUSION [None]
  - LYMPHADENOPATHY MEDIASTINAL [None]
  - HYPONATRAEMIA [None]
